FAERS Safety Report 11132160 (Version 2)
Quarter: 2016Q2

REPORT INFORMATION
  Report Type: Report from Study
  Country: US (occurrence: US)
  Receive Date: 20150522
  Receipt Date: 20160516
  Transmission Date: 20160815
  Serious: No
  Sender: FDA-Public Use
  Company Number: US-MALLINCKRODT-T201501640

PATIENT
  Sex: Male

DRUGS (1)
  1. REPOSITORY CORTICOTROPIN INJECTION [Suspect]
     Active Substance: CORTICOTROPIN
     Indication: IGA NEPHROPATHY
     Dosage: 80 UNITS, TWICE WKLY
     Route: 030
     Dates: start: 20150102

REACTIONS (4)
  - Heart rate increased [Unknown]
  - Skin bacterial infection [Unknown]
  - Blood pressure increased [Unknown]
  - Fatigue [Unknown]
